FAERS Safety Report 5910213-5 (Version None)
Quarter: 2008Q4

REPORT INFORMATION
  Report Type: 
  Country: None (occurrence: None)
  Receive Date: 20081007
  Receipt Date: 20071129
  Transmission Date: 20090506
  Serious: No
  Sender: FDA-Public Use
  Company Number: US-ASTRAZENECA-2007UW23879

PATIENT
  Age: 55 Year
  Sex: Female
  Weight: 64.4 kg

DRUGS (4)
  1. ARIMIDEX [Suspect]
     Indication: BREAST CANCER FEMALE
     Route: 048
     Dates: start: 20060301
  2. CALCIFER [Concomitant]
  3. VITAMIN D-3 [Concomitant]
  4. LEVOXYL [Concomitant]
     Indication: HYPOTHYROIDISM

REACTIONS (3)
  - ARTHRALGIA [None]
  - HYPOTHYROIDISM [None]
  - JOINT STIFFNESS [None]
